FAERS Safety Report 11398910 (Version 1)
Quarter: 2015Q3

REPORT INFORMATION
  Report Type: Spontaneous
  Country: US (occurrence: None)
  Receive Date: 20150819
  Receipt Date: 20150819
  Transmission Date: 20151125
  Serious: Yes (Other)
  Sender: FDA-Public Use
  Company Number: None

PATIENT
  Age: 65 Year
  Sex: Female
  Weight: 79.38 kg

DRUGS (6)
  1. D3 [Concomitant]
     Active Substance: 25-HYDROXYCHOLECALCIFEROL, 5-TRANS-
  2. VITAMIN B12 [Concomitant]
     Active Substance: CYANOCOBALAMIN
  3. TUMS [Concomitant]
     Active Substance: CALCIUM CARBONATE
  4. HYDROXYCHLOROQUINE [Suspect]
     Active Substance: HYDROXYCHLOROQUINE
     Indication: RHEUMATOID ARTHRITIS
     Dosage: 1 TABLET THEN 2 PER DAY, 1@ BEDTIME THEN 2/DAY TAKEN BY MOUTH
     Route: 048
     Dates: start: 20150621, end: 20150701
  5. PREDNISONE. [Concomitant]
     Active Substance: PREDNISONE
  6. FISH OIL [Concomitant]
     Active Substance: FISH OIL

REACTIONS (12)
  - Skin exfoliation [None]
  - Urticaria [None]
  - Cough [None]
  - No therapeutic response [None]
  - Glossodynia [None]
  - Burn oral cavity [None]
  - Rhinorrhoea [None]
  - Pulmonary congestion [None]
  - Rash papular [None]
  - Skin texture abnormal [None]
  - Dizziness [None]
  - Pruritus [None]

NARRATIVE: CASE EVENT DATE: 20150701
